FAERS Safety Report 9785326 (Version 1)
Quarter: 2013Q4

REPORT INFORMATION
  Report Type: Spontaneous
  Country: US (occurrence: US)
  Receive Date: 20131227
  Receipt Date: 20131227
  Transmission Date: 20140711
  Serious: No
  Sender: FDA-Public Use
  Company Number: US-MYLANLABS-2013S1010339

PATIENT
  Age: 79 Year
  Sex: Female
  Weight: 58.06 kg

DRUGS (4)
  1. CITALOPRAM TABLETS [Suspect]
     Indication: DEPRESSION
     Route: 048
     Dates: start: 20130422, end: 20130426
  2. SEROQUEL [Suspect]
     Indication: DEPRESSION
     Route: 048
     Dates: start: 20130422, end: 20130426
  3. FISH OIL [Concomitant]
     Route: 048
  4. CALCIUM + VIT D [Concomitant]
     Route: 048

REACTIONS (2)
  - Confusional state [Recovered/Resolved]
  - Pain in extremity [Recovered/Resolved]
